FAERS Safety Report 13046018 (Version 2)
Quarter: 2016Q4

REPORT INFORMATION
  Report Type: Report from Study
  Country: US (occurrence: US)
  Receive Date: 20161220
  Receipt Date: 20161228
  Transmission Date: 20170207
  Serious: Yes (Life-Threatening)
  Sender: FDA-Public Use
  Company Number: PHEH2016US033060

PATIENT
  Sex: Female
  Weight: 90.71 kg

DRUGS (2)
  1. COSENTYX [Suspect]
     Active Substance: SECUKINUMAB
     Indication: PSORIATIC ARTHROPATHY
     Dosage: 150 MG, QMO
     Route: 058
  2. COSENTYX [Suspect]
     Active Substance: SECUKINUMAB
     Indication: PNEUMONIA MYCOPLASMAL

REACTIONS (4)
  - Hypersensitivity [Unknown]
  - Swollen tongue [Recovered/Resolved]
  - Product use issue [Unknown]
  - Diarrhoea [Unknown]
